FAERS Safety Report 14784464 (Version 1)
Quarter: 2018Q2

REPORT INFORMATION
  Report Type: Spontaneous
  Country: US (occurrence: US)
  Receive Date: 20180420
  Receipt Date: 20180420
  Transmission Date: 20180711
  Serious: Yes (Disabling, Other)
  Sender: FDA-Public Use
  Company Number: US-REGENERON PHARMACEUTICALS, INC.-2018-17623

PATIENT

DRUGS (3)
  1. GENTEAL                            /00445101/ [Concomitant]
     Active Substance: HYPROMELLOSE 2910 (4000 MPA.S)
     Indication: PRODUCT USED FOR UNKNOWN INDICATION
  2. EYLEA [Suspect]
     Active Substance: AFLIBERCEPT
     Indication: NEOVASCULAR AGE-RELATED MACULAR DEGENERATION
     Dosage: OD, 0.5 ML, EVERY 4-6 WEEKS
     Route: 031
     Dates: start: 20141218
  3. EYLEA [Suspect]
     Active Substance: AFLIBERCEPT
     Dosage: LAST DOSE PRIOR TO THE EVENT, OD, EVERY 4-6 WEEKS
     Route: 031
     Dates: start: 20160310, end: 20160310

REACTIONS (4)
  - Intraocular pressure increased [Recovered/Resolved]
  - Overdose [Unknown]
  - Uveitis [Recovered/Resolved]
  - Blindness unilateral [Unknown]

NARRATIVE: CASE EVENT DATE: 20141218
